FAERS Safety Report 19588941 (Version 1)
Quarter: 2021Q3

REPORT INFORMATION
  Report Type: Report from Study
  Country: US (occurrence: US)
  Receive Date: 20210721
  Receipt Date: 20210721
  Transmission Date: 20211014
  Serious: Yes (Hospitalization, Disabling, Other)
  Sender: FDA-Public Use
  Company Number: US-EMD SERONO-E2B_80006941

PATIENT
  Age: 55 Year
  Sex: Female
  Weight: 72 kg

DRUGS (6)
  1. REBIF [Suspect]
     Active Substance: INTERFERON BETA-1A
     Dosage: REBIDOSE
     Route: 058
     Dates: start: 20180531, end: 2020
  2. BOTOX [Concomitant]
     Active Substance: ONABOTULINUMTOXINA
     Indication: NEUROGENIC BLADDER
  3. REBIF [Suspect]
     Active Substance: INTERFERON BETA-1A
     Indication: MULTIPLE SCLEROSIS
     Route: 058
     Dates: start: 20080122
  4. REBIF [Suspect]
     Active Substance: INTERFERON BETA-1A
     Route: 058
     Dates: start: 20140618
  5. AMPYRA [Concomitant]
     Active Substance: DALFAMPRIDINE
     Indication: MUSCULAR WEAKNESS
     Route: 048
     Dates: start: 20140102
  6. REBIF [Suspect]
     Active Substance: INTERFERON BETA-1A
     Dosage: STARTED WITH TITRATION
     Route: 058
     Dates: start: 202002

REACTIONS (17)
  - Radicular pain [Recovering/Resolving]
  - Product dose omission issue [Unknown]
  - Arthritis [Recovered/Resolved]
  - Mobility decreased [Recovering/Resolving]
  - Injection site bruising [Not Recovered/Not Resolved]
  - Foot operation [Unknown]
  - Hypoaesthesia [Recovering/Resolving]
  - Arthralgia [Unknown]
  - Joint stiffness [Recovering/Resolving]
  - Fall [Unknown]
  - Gait disturbance [Not Recovered/Not Resolved]
  - Blood sodium decreased [Unknown]
  - Injection site pain [Not Recovered/Not Resolved]
  - Pain in extremity [Recovering/Resolving]
  - Skin injury [Not Recovered/Not Resolved]
  - Impaired healing [Recovering/Resolving]
  - Ankle fracture [Not Recovered/Not Resolved]

NARRATIVE: CASE EVENT DATE: 201412
